FAERS Safety Report 15668119 (Version 2)
Quarter: 2018Q4

REPORT INFORMATION
  Report Type: Report from Study
  Country: None (occurrence: SE)
  Receive Date: 20181129
  Receipt Date: 20181130
  Transmission Date: 20190205
  Serious: Yes (Hospitalization)
  Sender: FDA-Public Use
  Company Number: SE-ABBVIE-18S-150-2566475-00

PATIENT
  Sex: Male

DRUGS (6)
  1. DUODOPA [Suspect]
     Active Substance: CARBIDOPA\LEVODOPA
     Dosage: CD INCREASED FROM 2.3 TO 2.6 ML/H.?XD INCREASED FROM 0.5 ML TO 1.0 ML.
     Route: 050
     Dates: start: 20181123, end: 20181123
  2. DUODOPA [Suspect]
     Active Substance: CARBIDOPA\LEVODOPA
     Dosage: CD INCREASED FROM 2.6 TO 2.9 ML/H.
     Route: 050
     Dates: start: 20181124, end: 20181124
  3. DUODOPA [Suspect]
     Active Substance: CARBIDOPA\LEVODOPA
     Indication: PARKINSON^S DISEASE
     Route: 050
     Dates: start: 20151130
  4. DUODOPA [Suspect]
     Active Substance: CARBIDOPA\LEVODOPA
     Dosage: MD: 7ML?CD: 3.1 ML/H?XD: 1.0 ML
     Route: 050
     Dates: start: 20181124, end: 201811
  5. DUODOPA [Suspect]
     Active Substance: CARBIDOPA\LEVODOPA
     Dosage: CD DOSE INCREASED FROM 3.1 TO 3.2 ML/H
     Route: 050
     Dates: start: 20181126
  6. DUODOPA [Suspect]
     Active Substance: CARBIDOPA\LEVODOPA
     Route: 050
     Dates: start: 20160211

REACTIONS (13)
  - Underdose [Unknown]
  - Loss of personal independence in daily activities [Not Recovered/Not Resolved]
  - Dysphagia [Unknown]
  - Speech disorder [Recovering/Resolving]
  - Musculoskeletal stiffness [Unknown]
  - Mobility decreased [Unknown]
  - Cogwheel rigidity [Unknown]
  - Parkinson^s disease [Not Recovered/Not Resolved]
  - Drug effect incomplete [Unknown]
  - Hyperkinesia [Not Recovered/Not Resolved]
  - Facial asymmetry [Unknown]
  - Motor dysfunction [Recovering/Resolving]
  - Tremor [Unknown]

NARRATIVE: CASE EVENT DATE: 2018
